FAERS Safety Report 8436120-4 (Version None)
Quarter: 2012Q2

REPORT INFORMATION
  Report Type: 
  Country: None (occurrence: None)
  Receive Date: 20120614
  Receipt Date: 20120608
  Transmission Date: 20120825
  Serious: Yes (Hospitalization)
  Sender: FDA-Public Use
  Company Number: GB-ROCHE-1076867

PATIENT

DRUGS (2)
  1. AMLODIPINE [Concomitant]
     Indication: HYPERTENSION
     Dates: start: 20110601
  2. AVASTIN [Suspect]
     Indication: MALIGNANT MELANOMA
     Route: 042
     Dates: start: 20120315, end: 20120426

REACTIONS (1)
  - CELLULITIS [None]
